FAERS Safety Report 8196124-6 (Version None)
Quarter: 2012Q1

REPORT INFORMATION
  Report Type: 
  Country: None (occurrence: None)
  Receive Date: 20120223
  Receipt Date: 20110713
  Transmission Date: 20120608
  Serious: Yes (Life-Threatening, Disabling, Other)
  Sender: FDA-Public Use
  Company Number: WAES 1107USA02070

PATIENT
  Age: 65 Year
  Sex: Male
  Weight: 57.1532 kg

DRUGS (5)
  1. METOPROLOL SUCCINATE [Concomitant]
  2. HYDROCHLOROTHIAZIDE [Concomitant]
  3. ZOCOR [Suspect]
     Indication: HYPERLIPIDAEMIA
     Dosage: 40 MG/DAILY/PO
     Route: 048
     Dates: start: 20100409, end: 20110706
  4. PLAVIX [Concomitant]
  5. OMEPRAZOLE [Concomitant]

REACTIONS (5)
  - ALANINE AMINOTRANSFERASE INCREASED [None]
  - MYALGIA [None]
  - PAIN [None]
  - ASPARTATE AMINOTRANSFERASE INCREASED [None]
  - BLOOD CREATINE PHOSPHOKINASE INCREASED [None]
